FAERS Safety Report 10429270 (Version 1)
Quarter: 2014Q3

REPORT INFORMATION
  Report Type: Spontaneous
  Country: US (occurrence: None)
  Receive Date: 20140902
  Receipt Date: 20140902
  Transmission Date: 20150326
  Serious: No
  Sender: FDA-Public Use
  Company Number: None

PATIENT
  Age: 24 Year
  Sex: Female

DRUGS (14)
  1. AMITRIPTYLINE [Concomitant]
     Active Substance: AMITRIPTYLINE
  2. ONDANSETRON [Concomitant]
     Active Substance: ONDANSETRON
  3. INSULIN REG/NPH 70/30 [Concomitant]
  4. LORAZEPAM. [Concomitant]
     Active Substance: LORAZEPAM
  5. ACETAMINOPHEN. [Concomitant]
     Active Substance: ACETAMINOPHEN
  6. FAMOTIDINE. [Concomitant]
     Active Substance: FAMOTIDINE
  7. GABAPENTIN. [Concomitant]
     Active Substance: GABAPENTIN
  8. MAGNESIUM SULFATE [Concomitant]
     Active Substance: MAGNESIUM SULFATE
  9. PROMETHAZINE [Concomitant]
     Active Substance: PROMETHAZINE\PROMETHAZINE HYDROCHLORIDE
  10. INSULIN ASPART [Suspect]
     Active Substance: INSULIN ASPART
     Indication: HYPERGLYCAEMIA
     Route: 058
     Dates: start: 20140628, end: 20140705
  11. HYDROMORPHONE [Concomitant]
     Active Substance: HYDROMORPHONE
  12. METOCLOPRAMIDE. [Concomitant]
     Active Substance: METOCLOPRAMIDE
  13. LABETALOL [Concomitant]
     Active Substance: LABETALOL\LABETALOL HYDROCHLORIDE
  14. LIDOCAINE. [Concomitant]
     Active Substance: LIDOCAINE

REACTIONS (1)
  - Blood glucose decreased [None]

NARRATIVE: CASE EVENT DATE: 20140705
